FAERS Safety Report 21279691 (Version 1)
Quarter: 2022Q3

REPORT INFORMATION
  Report Type: Spontaneous
  Country: US (occurrence: None)
  Receive Date: 20220831
  Receipt Date: 20220831
  Transmission Date: 20221026
  Serious: Yes (Other)
  Sender: FDA-Public Use
  Company Number: None

PATIENT
  Age: 41 Year
  Sex: Female
  Weight: 74.8 kg

DRUGS (1)
  1. BEBTELOVIMAB [Suspect]
     Active Substance: BEBTELOVIMAB
     Indication: COVID-19
     Dosage: FREQUENCY : ONCE;?
     Route: 042

REACTIONS (12)
  - Infusion related reaction [None]
  - Malaise [None]
  - Flushing [None]
  - Erythema [None]
  - Chest discomfort [None]
  - Nausea [None]
  - Blood pressure increased [None]
  - Back pain [None]
  - Feeling abnormal [None]
  - Headache [None]
  - Pain [None]
  - Dyspnoea [None]

NARRATIVE: CASE EVENT DATE: 20220615
